FAERS Safety Report 10090606 (Version 2)
Quarter: 2014Q3

REPORT INFORMATION
  Report Type: Spontaneous
  Country: JP (occurrence: JP)
  Receive Date: 20140421
  Receipt Date: 20140725
  Transmission Date: 20150326
  Serious: Yes (Hospitalization)
  Sender: FDA-Public Use
  Company Number: PHJP2014JP000718

PATIENT
  Age: 83 Year
  Sex: Female

DRUGS (3)
  1. ARIPIPRAZOLE [Suspect]
     Active Substance: ARIPIPRAZOLE
     Route: 048
  2. TEGRETOL [Suspect]
     Active Substance: CARBAMAZEPINE
     Indication: HALLUCINATION, AUDITORY
     Dosage: 200 MG, UNK
     Route: 048
     Dates: start: 20130806, end: 20130813
  3. TEGRETOL [Suspect]
     Active Substance: CARBAMAZEPINE
     Indication: HALLUCINATION, AUDITORY
     Dosage: 50 MG, DAILY
     Route: 048
     Dates: start: 20130706, end: 20130805

REACTIONS (8)
  - Delusion [Recovering/Resolving]
  - Extrapyramidal disorder [Unknown]
  - Persecutory delusion [Recovering/Resolving]
  - Agitation [Recovering/Resolving]
  - Condition aggravated [Unknown]
  - Muscle rigidity [Unknown]
  - Tremor [Unknown]
  - Hallucination, auditory [Recovering/Resolving]
